FAERS Safety Report 5542070-3 (Version None)
Quarter: 2007Q4

REPORT INFORMATION
  Report Type: 
  Country: None (occurrence: None)
  Receive Date: 20071205
  Receipt Date: 20071129
  Transmission Date: 20080405
  Serious: Yes (Hospitalization)
  Sender: FDA-Public Use
  Company Number: LTI2007A00331

PATIENT
  Age: 12 Year
  Sex: Female

DRUGS (2)
  1. LEUPROLIDE ACETATE [Suspect]
     Indication: GROWTH RETARDATION
     Dosage: 11.25 MG (11.25 MG, 1 IN 3 M)
     Route: 058
     Dates: start: 20071005
  2. SOMATROPIN                             (SOMAPTROPIN) (INJECTION) [Suspect]
     Indication: GROWTH RETARDATION
     Dosage: (1 IN 1 D)
     Dates: start: 20071009

REACTIONS (11)
  - ABDOMINAL PAIN [None]
  - DELIRIUM [None]
  - HAEMATOCRIT DECREASED [None]
  - HAEMOGLOBIN DECREASED [None]
  - HALLUCINATION, VISUAL [None]
  - HYPERACUSIS [None]
  - MIGRAINE [None]
  - MUSCULOSKELETAL STIFFNESS [None]
  - PHOTOPHOBIA [None]
  - POST LUMBAR PUNCTURE SYNDROME [None]
  - VOMITING [None]
